FAERS Safety Report 4794543-9 (Version None)
Quarter: 2005Q4

REPORT INFORMATION
  Report Type: 
  Country: None (occurrence: None)
  Receive Date: 20051011
  Receipt Date: 20050926
  Transmission Date: 20060501
  Serious: Yes (Hospitalization)
  Sender: FDA-Public Use
  Company Number: US-AMGEN-US152000

PATIENT
  Sex: Female

DRUGS (5)
  1. NEUPOGEN [Suspect]
     Indication: CHEMOTHERAPY
     Dates: end: 20050823
  2. GEMZAR [Concomitant]
     Dates: end: 20050823
  3. CISPLATIN [Concomitant]
     Dates: end: 20050823
  4. DECADRON [Concomitant]
  5. ATIVAN [Concomitant]

REACTIONS (5)
  - DYSURIA [None]
  - EMBOLISM [None]
  - PELVIC HAEMATOMA [None]
  - PELVIC HAEMORRHAGE [None]
  - THROMBOSIS [None]
